FAERS Safety Report 5446013-2 (Version None)
Quarter: 2007Q3

REPORT INFORMATION
  Report Type: 
  Country: None (occurrence: None)
  Receive Date: 20070907
  Receipt Date: 20070828
  Transmission Date: 20080115
  Serious: Yes (Other)
  Sender: FDA-Public Use
  Company Number: US-JNJFOC-20070805833

PATIENT
  Sex: Male
  Weight: 66.68 kg

DRUGS (4)
  1. REMICADE [Suspect]
     Route: 042
  2. REMICADE [Suspect]
     Indication: CROHN'S DISEASE
     Route: 042
  3. ACCUTANE [Concomitant]
     Indication: ACNE
  4. VIACTIVE [Concomitant]
     Indication: NUTRITIONAL SUPPORT

REACTIONS (2)
  - BLOOD CREATININE INCREASED [None]
  - HAEMATURIA [None]
